FAERS Safety Report 16252947 (Version 1)
Quarter: 2019Q2

REPORT INFORMATION
  Report Type: Spontaneous
  Country: BR (occurrence: BR)
  Receive Date: 20190429
  Receipt Date: 20190429
  Transmission Date: 20190711
  Serious: Yes (Other)
  Sender: FDA-Public Use
  Company Number: BR-DSJP-DSE-2019-114864

PATIENT

DRUGS (1)
  1. BENICAR ANLO 40/5 [Suspect]
     Active Substance: AMLODIPINE BESYLATE\OLMESARTAN MEDOXOMIL
     Indication: HYPERTENSION
     Dosage: 40/5 MG, QD
     Route: 048
     Dates: start: 201902, end: 201902

REACTIONS (6)
  - Nail injury [Recovering/Resolving]
  - Syncope [Recovered/Resolved]
  - Dizziness [Recovered/Resolved]
  - Limb injury [Recovering/Resolving]
  - Accident at home [Recovered/Resolved]
  - Hypotension [Recovered/Resolved]

NARRATIVE: CASE EVENT DATE: 201902
